FAERS Safety Report 11761704 (Version 1)
Quarter: 2015Q4

REPORT INFORMATION
  Report Type: Spontaneous
  Country: US (occurrence: US)
  Receive Date: 20151120
  Receipt Date: 20151120
  Transmission Date: 20160304
  Serious: No
  Sender: FDA-Public Use
  Company Number: US-ELI_LILLY_AND_COMPANY-US201301001993

PATIENT
  Age: 85 Year
  Sex: Female

DRUGS (5)
  1. FORTEO [Suspect]
     Active Substance: TERIPARATIDE
     Indication: OSTEOPOROSIS
     Dosage: 20 UG, QD
     Route: 065
  2. TIMOLOL. [Concomitant]
     Active Substance: TIMOLOL
  3. ALREX [Concomitant]
     Active Substance: LOTEPREDNOL ETABONATE
  4. RESTASIS [Concomitant]
     Active Substance: CYCLOSPORINE
  5. SYNTHROID [Concomitant]
     Active Substance: LEVOTHYROXINE SODIUM

REACTIONS (4)
  - Upper limb fracture [Unknown]
  - Fall [Unknown]
  - Pain [Unknown]
  - Musculoskeletal disorder [Unknown]

NARRATIVE: CASE EVENT DATE: 20121018
